FAERS Safety Report 12695174 (Version 3)
Quarter: 2019Q4

REPORT INFORMATION
  Report Type: Spontaneous
  Country: DE (occurrence: DE)
  Receive Date: 20160829
  Receipt Date: 20191019
  Transmission Date: 20200122
  Serious: Yes (Other)
  Sender: FDA-Public Use
  Company Number: DE-TEVA-686467GER

PATIENT
  Age: 5 Decade
  Sex: Female
  Weight: 84 kg

DRUGS (4)
  1. PROTAPHANE [Concomitant]
     Active Substance: INSULIN HUMAN
     Indication: GESTATIONAL DIABETES
     Dosage: 36 (IU PER DAY (UP TO 15 IU PER DAY)
     Route: 058
  2. OLANZAPINE. [Suspect]
     Active Substance: OLANZAPINE
     Indication: PSYCHOTIC DISORDER
     Dosage: 5 MILLIGRAM DAILY;
     Route: 048
     Dates: start: 20150815, end: 20160513
  3. NOVORAPID [Concomitant]
     Active Substance: INSULIN ASPART
     Indication: GESTATIONAL DIABETES
     Route: 058
  4. FEMIBION (NEM) [Concomitant]
     Indication: PROPHYLAXIS OF NEURAL TUBE DEFECT
     Dosage: .4 MILLIGRAM DAILY;
     Route: 048
     Dates: start: 20150815, end: 20160513

REACTIONS (3)
  - Gestational diabetes [Recovered/Resolved]
  - Normal newborn [Unknown]
  - Maternal exposure during pregnancy [Unknown]
